FAERS Safety Report 10718188 (Version 1)
Quarter: 2015Q1

REPORT INFORMATION
  Report Type: Spontaneous
  Country: US (occurrence: US)
  Receive Date: 20150118
  Receipt Date: 20150118
  Transmission Date: 20150721
  Serious: No
  Sender: FDA-Public Use
  Company Number: US-ASTRAZENECA-2014SE98982

PATIENT
  Sex: Female
  Weight: 68 kg

DRUGS (2)
  1. OMEPRAZOLE. [Suspect]
     Active Substance: OMEPRAZOLE
     Indication: OESOPHAGITIS
     Dosage: 40 MG DAILY, GENERIC
     Route: 048
     Dates: start: 201411
  2. OMEPRAZOLE. [Suspect]
     Active Substance: OMEPRAZOLE
     Indication: GASTRITIS
     Dosage: 40 MG DAILY, GENERIC
     Route: 048
     Dates: start: 201411

REACTIONS (3)
  - Heart rate increased [Unknown]
  - Dizziness [Not Recovered/Not Resolved]
  - Ear disorder [Not Recovered/Not Resolved]
